FAERS Safety Report 8057547-9 (Version None)
Quarter: 2012Q1

REPORT INFORMATION
  Report Type: 
  Country: None (occurrence: None)
  Receive Date: 20120120
  Receipt Date: 20120104
  Transmission Date: 20120608
  Serious: Yes (Hospitalization, Other)
  Sender: FDA-Public Use
  Company Number: DE-AMGEN-DEUCT2011068553

PATIENT
  Age: 57 Year
  Sex: Female
  Weight: 90 kg

DRUGS (17)
  1. ETANERCEPT [Suspect]
     Indication: PSORIASIS
     Dosage: 25 MG, 2 TIMES/WK
     Dates: start: 20111006
  2. OMEPRAZOLE [Concomitant]
     Dosage: 40 MG, UNK
  3. CALCIUM [Concomitant]
     Dosage: 500 MG, UNK
  4. DAIVOBET [Concomitant]
     Dosage: UNK UNK, BID
  5. PREDNISOLONE [Concomitant]
     Dosage: 7.5 MG, UNK
  6. PSORCUTAN [Concomitant]
     Dosage: 1X/DAY
     Dates: start: 20110401
  7. PREDNISOLONE [Concomitant]
     Indication: RHEUMATOID ARTHRITIS
     Dosage: 7.5 MG, UNK
     Dates: end: 20111001
  8. PREDNISOLONE [Concomitant]
     Dosage: 2 MG, 1X/DAY
     Route: 048
     Dates: start: 20111006
  9. HYDROCHLOROTHIAZID [Concomitant]
     Dosage: 12.5 MG, UNK
  10. BASODEXAN [Concomitant]
     Indication: PSORIASIS
     Dosage: UNK; 1X/DAY
  11. ENALAPRIL MALEATE [Concomitant]
     Dosage: 5 MG, UNK
  12. ARCOXIA [Concomitant]
     Dosage: 60 MG, UNK
  13. VITAMIN D [Concomitant]
     Dosage: 1000 IU, UNK
  14. ETANERCEPT [Suspect]
     Indication: RHEUMATOID ARTHRITIS
     Dosage: 50 MG, 2X/WEEK
     Route: 058
     Dates: start: 20110505, end: 20111001
  15. CIGNOLIN [Concomitant]
     Dosage: 0.063 (NOT FURTHER SPECIFIED), SINCE 09MAY2011 TAPERING
     Dates: start: 20110401
  16. ASPIRIN [Concomitant]
     Dosage: 100 MG, UNK
  17. AMLODIPINE [Concomitant]
     Dosage: 5 MG, UNK

REACTIONS (3)
  - RENAL FAILURE [None]
  - UROSEPSIS [None]
  - DEHYDRATION [None]
